FAERS Safety Report 7213098-2 (Version None)
Quarter: 2010Q4

REPORT INFORMATION
  Report Type: 
  Country: None (occurrence: None)
  Receive Date: 20101227
  Receipt Date: 20101215
  Transmission Date: 20110411
  Serious: Yes (Other)
  Sender: FDA-Public Use
  Company Number: DKLU1066397

PATIENT
  Age: 12 Year
  Sex: Male

DRUGS (6)
  1. SABRIL [Suspect]
     Indication: CONVULSION
     Dosage: 500 MG MILLIGRAM(S), 2 IN 1 D, ORAL, ORAL
     Route: 048
     Dates: start: 20101101, end: 20101123
  2. SABRIL [Suspect]
     Indication: CONVULSION
     Dosage: 500 MG MILLIGRAM(S), 2 IN 1 D, ORAL, ORAL
     Route: 048
     Dates: start: 20101107
  3. DEPAKOTE ER [Concomitant]
  4. TOPAMAX [Concomitant]
  5. KLONOPIN [Concomitant]
  6. IVIG (IMMUNOGLOBULIN) [Concomitant]

REACTIONS (8)
  - ABDOMINAL PAIN UPPER [None]
  - DIZZINESS [None]
  - EYE PAIN [None]
  - HEADACHE [None]
  - MALAISE [None]
  - NERVOUS SYSTEM DISORDER [None]
  - SOMNOLENCE [None]
  - TREMOR [None]
